FAERS Safety Report 5688272-7 (Version None)
Quarter: 2008Q1

REPORT INFORMATION
  Report Type: 
  Country: None (occurrence: None)
  Receive Date: 20080328
  Receipt Date: 20080328
  Transmission Date: 20080703
  Serious: Yes (Hospitalization, Disabling)
  Sender: FDA-Public Use
  Company Number: None

PATIENT
  Sex: Female
  Weight: 68.0396 kg

DRUGS (1)
  1. SINGULAIR [Suspect]
     Indication: ASTHMA
     Dosage: ONE PILL DAILY
     Dates: start: 20000301, end: 20050301

REACTIONS (3)
  - DEPRESSION [None]
  - LACERATION [None]
  - SUICIDE ATTEMPT [None]
